FAERS Safety Report 19269423 (Version 1)
Quarter: 2021Q2

REPORT INFORMATION
  Report Type: Report from Study
  Country: US (occurrence: US)
  Receive Date: 20210517
  Receipt Date: 20210517
  Transmission Date: 20210717
  Serious: Yes (Death, Hospitalization, Other)
  Sender: FDA-Public Use
  Company Number: US-BRISTOL-MYERS SQUIBB COMPANY-BMS-2018-051867

PATIENT
  Age: 62 Year
  Sex: Female
  Weight: 78 kg

DRUGS (3)
  1. NIVOLUMAB [Suspect]
     Active Substance: NIVOLUMAB
     Indication: SMALL CELL LUNG CANCER
     Dosage: UNK
     Route: 065
     Dates: start: 20180329, end: 20180329
  2. AD.P53?DC [Suspect]
     Active Substance: INVESTIGATIONAL PRODUCT
     Indication: SMALL CELL LUNG CANCER
     Dosage: UNK
     Route: 065
     Dates: start: 20180329, end: 20180426
  3. IPILIMUMAB [Suspect]
     Active Substance: IPILIMUMAB
     Indication: SMALL CELL LUNG CANCER
     Dosage: UNK
     Route: 065
     Dates: start: 20180329, end: 20180329

REACTIONS (2)
  - Death [Fatal]
  - Abdominal pain [Unknown]

NARRATIVE: CASE EVENT DATE: 20180516
